FAERS Safety Report 5970989-8 (Version None)
Quarter: 2008Q4

REPORT INFORMATION
  Report Type: 
  Country: None (occurrence: None)
  Receive Date: 20081128
  Receipt Date: 20081121
  Transmission Date: 20090506
  Serious: Yes (Hospitalization)
  Sender: FDA-Public Use
  Company Number: PHEH2008US10476

PATIENT
  Sex: Female

DRUGS (1)
  1. RECLAST [Suspect]
     Indication: OSTEOPOROSIS
     Dosage: UNK
     Dates: start: 20081119

REACTIONS (4)
  - ARTHRALGIA [None]
  - DYSPHAGIA [None]
  - DYSPNOEA [None]
  - MUSCULOSKELETAL STIFFNESS [None]
